FAERS Safety Report 10485670 (Version 1)
Quarter: 2014Q4

REPORT INFORMATION
  Report Type: Spontaneous
  Country: IE (occurrence: CH)
  Receive Date: 20141001
  Receipt Date: 20141001
  Transmission Date: 20150528
  Serious: Yes (Hospitalization)
  Sender: FDA-Public Use
  Company Number: 2014SP000563

PATIENT
  Sex: Male

DRUGS (47)
  1. METHOTREXATE [Suspect]
     Active Substance: METHOTREXATE
     Indication: PROPHYLAXIS
     Route: 041
     Dates: start: 20131129, end: 20131129
  2. METHOTREXATE [Suspect]
     Active Substance: METHOTREXATE
     Indication: PROPHYLAXIS
     Route: 041
     Dates: start: 20131202, end: 20131202
  3. ACYCLOVIR. [Suspect]
     Active Substance: ACYCLOVIR
     Indication: PROPHYLAXIS
     Route: 041
     Dates: start: 20131201, end: 20131201
  4. ALLOPURINOL. [Suspect]
     Active Substance: ALLOPURINOL
     Indication: GOUT
     Route: 048
     Dates: start: 20131118, end: 20131126
  5. SANDIMMUNE [Suspect]
     Active Substance: CYCLOSPORINE
     Indication: PROPHYLAXIS
     Route: 041
     Dates: start: 20131124, end: 20131126
  6. FORTECORTIN /00016002/ [Concomitant]
  7. HEPARIN [Concomitant]
     Active Substance: HEPARIN SODIUM
  8. PANTOPRAZOLE SODIUM SESQUIHYDRATE [Suspect]
     Active Substance: PANTOPRAZOLE SODIUM
     Indication: PROPHYLAXIS
     Route: 048
     Dates: start: 20131118
  9. PASPERTIN /00041902/ [Concomitant]
     Active Substance: METOCLOPRAMIDE HYDROCHLORIDE
  10. DEFIBROTIDE [Concomitant]
     Active Substance: DEFIBROTIDE (BOVINE)
  11. ACYCLOVIR. [Suspect]
     Active Substance: ACYCLOVIR
     Indication: PROPHYLAXIS
     Route: 041
     Dates: start: 20121202, end: 20121202
  12. FLUCONAZOLE. [Suspect]
     Active Substance: FLUCONAZOLE
     Indication: PROPHYLAXIS
     Route: 048
     Dates: start: 201311
  13. MESNA. [Suspect]
     Active Substance: MESNA
     Indication: PROPHYLAXIS
     Route: 041
     Dates: start: 20131119, end: 20131120
  14. LABETALOL HYDROCHLORIDE. [Suspect]
     Active Substance: LABETALOL HYDROCHLORIDE
     Indication: ESSENTIAL HYPERTENSION
     Route: 041
     Dates: start: 20131201, end: 20131201
  15. ATORVASTATIN [Suspect]
     Active Substance: ATORVASTATIN
     Indication: HYPERLIPIDAEMIA
     Route: 048
     Dates: start: 20131118, end: 20131118
  16. ENDOXAN /00021101/ [Suspect]
     Active Substance: CYCLOPHOSPHAMIDE
     Indication: PROPHYLAXIS
     Route: 041
     Dates: start: 20131119, end: 20131120
  17. BUSULFAN [Suspect]
     Active Substance: BUSULFAN
     Indication: PROPHYLAXIS
     Route: 041
     Dates: start: 20131121, end: 20131124
  18. METHYLPREDNISOLONE SODIUM SUCCINATE. [Suspect]
     Active Substance: METHYLPREDNISOLONE SODIUM SUCCINATE
     Indication: PROPHYLAXIS
     Route: 041
     Dates: start: 20131122, end: 20131124
  19. SANDIMMUNE [Suspect]
     Active Substance: CYCLOSPORINE
     Indication: PROPHYLAXIS
     Route: 041
     Dates: start: 20131201
  20. EMEND [Suspect]
     Active Substance: APREPITANT
     Indication: VOMITING
     Route: 041
     Dates: start: 20131120, end: 20131128
  21. ASPIRIN. [Suspect]
     Active Substance: ASPIRIN
     Indication: PROPHYLAXIS
     Route: 048
     Dates: start: 20131118, end: 20131122
  22. FLAMON [Suspect]
     Active Substance: VERAPAMIL HYDROCHLORIDE
     Indication: ESSENTIAL HYPERTENSION
     Route: 048
     Dates: start: 20131128, end: 20131202
  23. TAVEGYL [Concomitant]
     Active Substance: CLEMASTINE FUMARATE
  24. PANTOPRAZOLE SODIUM SESQUIHYDRATE [Suspect]
     Active Substance: PANTOPRAZOLE SODIUM
     Indication: PROPHYLAXIS
     Route: 048
     Dates: start: 20131202
  25. FUROSEMIDE. [Suspect]
     Active Substance: FUROSEMIDE
     Route: 041
     Dates: start: 20131119, end: 20131203
  26. ANTITHYMOCYTE IMMUNOGLOBULIN [Suspect]
     Active Substance: THYMOCYTE IMMUNE GLOBULIN NOS
     Indication: PROPHYLAXIS
     Route: 041
     Dates: start: 20131122, end: 20131124
  27. ALOXI [Suspect]
     Active Substance: PALONOSETRON HYDROCHLORIDE
     Indication: NAUSEA
     Route: 041
     Dates: start: 20131119, end: 20131119
  28. LAXOBERON [Concomitant]
     Active Substance: SODIUM PICOSULFATE
  29. CEFEPIME [Suspect]
     Active Substance: CEFEPIME\CEFEPIME HYDROCHLORIDE
     Indication: BACTERIAL INFECTION
     Route: 041
     Dates: start: 20131123, end: 20131129
  30. LABETALOL HYDROCHLORIDE. [Suspect]
     Active Substance: LABETALOL HYDROCHLORIDE
     Indication: ESSENTIAL HYPERTENSION
     Route: 041
     Dates: start: 20131203, end: 20131203
  31. SANDIMMUNE [Suspect]
     Active Substance: CYCLOSPORINE
     Indication: PROPHYLAXIS
     Route: 041
     Dates: start: 20131127, end: 20131130
  32. EMEND [Suspect]
     Active Substance: APREPITANT
     Indication: VOMITING
     Route: 041
     Dates: start: 20131119, end: 20131119
  33. SIMETHICONE [Concomitant]
     Active Substance: DIMETHICONE\SILICON DIOXIDE\SIMETHICONE
  34. MEROPENEM TRIHYDRATE [Suspect]
     Active Substance: MEROPENEM
     Indication: BACTERIAL INFECTION
     Route: 041
     Dates: start: 20131202
  35. MESNA. [Suspect]
     Active Substance: MESNA
     Indication: PROPHYLAXIS
     Route: 041
     Dates: start: 20131121, end: 20131121
  36. PIPERACILLIN/TAZOBACTAM [Suspect]
     Active Substance: PIPERACILLIN SODIUM\TAZOBACTAM SODIUM
     Indication: BACTERIAL INFECTION
     Route: 041
     Dates: start: 20131129, end: 20131201
  37. HYDROCORTISONE SODIUM SUCCINATE [Suspect]
     Active Substance: HYDROCORTISONE SODIUM SUCCINATE
     Indication: PROPHYLAXIS
     Route: 041
     Dates: start: 20131128, end: 20131128
  38. VALTREX [Suspect]
     Active Substance: VALACYCLOVIR HYDROCHLORIDE
     Indication: PROPHYLAXIS
     Route: 048
     Dates: start: 20131118
  39. SULFAMETHOXAZOL [Suspect]
     Active Substance: SULFAMETHOXAZOLE
     Route: 048
     Dates: start: 201311
  40. TRIATEC /00885601/ [Suspect]
     Active Substance: RAMIPRIL
     Indication: ESSENTIAL HYPERTENSION
     Route: 048
     Dates: start: 20131122, end: 20131202
  41. MEBEVERINE HYDROCHLORIDE [Concomitant]
     Active Substance: MEBEVERINE HYDROCHLORIDE
  42. FUROSEMIDE. [Suspect]
     Active Substance: FUROSEMIDE
     Route: 041
     Dates: start: 20131204
  43. AMIKIN [Suspect]
     Active Substance: AMIKACIN SULFATE
     Indication: BACTERIAL INFECTION
     Route: 041
     Dates: start: 20131123, end: 20141125
  44. TRIMETHOPRIM. [Suspect]
     Active Substance: TRIMETHOPRIM
     Route: 048
     Dates: start: 201311
  45. FLAMON [Suspect]
     Active Substance: VERAPAMIL HYDROCHLORIDE
     Indication: ESSENTIAL HYPERTENSION
     Route: 048
     Dates: start: 20131118, end: 20131127
  46. LEUCOVORIN /00566702/ [Concomitant]
     Active Substance: LEUCOVORIN
  47. URSOFALK [Concomitant]
     Active Substance: URSODIOL

REACTIONS (9)
  - Blood bilirubin increased [Recovering/Resolving]
  - Alanine aminotransferase increased [Recovering/Resolving]
  - Cholestasis [Unknown]
  - Drug-induced liver injury [Unknown]
  - Haemolysis [Unknown]
  - Aspartate aminotransferase increased [Recovering/Resolving]
  - Jaundice [Recovering/Resolving]
  - Hepatic enzyme increased [Recovering/Resolving]
  - Blood alkaline phosphatase increased [Recovering/Resolving]

NARRATIVE: CASE EVENT DATE: 201311
